FAERS Safety Report 5455000-X (Version None)
Quarter: 2007Q3

REPORT INFORMATION
  Report Type: 
  Country: None (occurrence: None)
  Receive Date: 20070913
  Receipt Date: 20070907
  Transmission Date: 20080115
  Serious: Yes (Hospitalization)
  Sender: FDA-Public Use
  Company Number: E2020-01552-SPO-JP

PATIENT
  Age: 89 Year
  Sex: Male

DRUGS (7)
  1. ARICEPT [Suspect]
     Indication: DEMENTIA ALZHEIMER'S TYPE
     Dosage: ORAL, 5 MG, 1 IN 1 D, ORAL
     Route: 048
     Dates: start: 20061001, end: 20061101
  2. ARICEPT [Suspect]
     Indication: DEMENTIA ALZHEIMER'S TYPE
     Dosage: ORAL, 5 MG, 1 IN 1 D, ORAL
     Route: 048
     Dates: start: 20061101, end: 20070603
  3. CONIEL (BENEDIPINE HYDROCHLORIDE) (BENEDIPINE HYDROCHLORIDE) [Concomitant]
  4. SELBEX (TEPRENONE TEPRENONE) [Concomitant]
  5. HARNAL (TAMSULOSIN HYDROCHLORIDE) (TAMSULOSIN HYDROCHLORIDE) [Concomitant]
  6. BUFFERIN (ASPIRIN DIALUMINATE) (BUFFERIN) [Concomitant]
  7. SERMION (NICERGOLINE) (NICERGOLINE) [Concomitant]

REACTIONS (1)
  - OESOPHAGITIS HAEMORRHAGIC [None]
